FAERS Safety Report 6698091-0 (Version None)
Quarter: 2010Q2

REPORT INFORMATION
  Report Type: 
  Country: None (occurrence: None)
  Receive Date: 20100427
  Receipt Date: 20100416
  Transmission Date: 20101027
  Serious: Yes (Death, Hospitalization)
  Sender: FDA-Public Use
  Company Number: ZA-JNJFOC-20100302025

PATIENT
  Sex: Female
  Weight: 48 kg

DRUGS (2)
  1. REVELLEX [Suspect]
     Indication: CROHN'S DISEASE
     Route: 042
  2. REVELLEX [Suspect]
     Route: 042

REACTIONS (2)
  - DEATH [None]
  - DYSTONIA [None]
